FAERS Safety Report 4978946-5 (Version None)
Quarter: 2006Q2

REPORT INFORMATION
  Report Type: 
  Country: None (occurrence: None)
  Receive Date: 20060419
  Receipt Date: 20060419
  Transmission Date: 20061013
  Serious: Yes (Hospitalization)
  Sender: FDA-Public Use
  Company Number: None

PATIENT
  Age: 77 Year
  Sex: Male
  Weight: 96 kg

DRUGS (6)
  1. WARFARIN SODIUM [Suspect]
     Indication: ATRIAL FIBRILLATION
     Dosage: 5 MG DAILY ORAL
     Route: 048
     Dates: start: 20051109, end: 20060228
  2. WARFARIN SODIUM [Suspect]
     Indication: CARDIOMYOPATHY
     Dosage: 5 MG DAILY ORAL
     Route: 048
     Dates: start: 20051109, end: 20060228
  3. AMIODARONE [Concomitant]
  4. METOPROLOL SA [Concomitant]
  5. SERTRALINE [Concomitant]
  6. TAMSULOSIN HCL [Concomitant]

REACTIONS (3)
  - COLON CANCER [None]
  - LYMPHOMA [None]
  - RECTAL HAEMORRHAGE [None]
